FAERS Safety Report 16541838 (Version 1)
Quarter: 2019Q3

REPORT INFORMATION
  Report Type: Report from Study
  Country: US (occurrence: US)
  Receive Date: 20190708
  Receipt Date: 20190708
  Transmission Date: 20191004
  Serious: Yes (Hospitalization, Other)
  Sender: FDA-Public Use
  Company Number: US-GILEAD-2019-0416893

PATIENT
  Age: 50 Year
  Sex: Male

DRUGS (1)
  1. EMTRICITABINE/TENOFOVIR ALAFENAMIDE [Suspect]
     Active Substance: EMTRICITABINE\TENOFOVIR
     Indication: HIV INFECTION
     Dosage: 225 MG, QD
     Route: 048
     Dates: start: 201712, end: 201801

REACTIONS (3)
  - Cerebrovascular accident [Not Recovered/Not Resolved]
  - Product use issue [Not Recovered/Not Resolved]
  - Neurosyphilis [Not Recovered/Not Resolved]

NARRATIVE: CASE EVENT DATE: 201801
